FAERS Safety Report 7545922-8 (Version None)
Quarter: 2011Q2

REPORT INFORMATION
  Report Type: 
  Country: None (occurrence: None)
  Receive Date: 20110613
  Receipt Date: 20110613
  Transmission Date: 20111010
  Serious: Yes (Other)
  Sender: FDA-Public Use
  Company Number: None

PATIENT

DRUGS (1)
  1. PHENOBARBITAL 20MG/5ML ELIXIR [Suspect]
     Dates: start: 20110401, end: 20110501

REACTIONS (8)
  - DYSPNOEA [None]
  - LETHARGY [None]
  - PRODUCT MEASURED POTENCY ISSUE [None]
  - PRODUCT QUALITY ISSUE [None]
  - PRODUCT DEPOSIT [None]
  - SOMNOLENCE [None]
  - DEHYDRATION [None]
  - ANTICONVULSANT DRUG LEVEL INCREASED [None]
